FAERS Safety Report 24613768 (Version 1)
Quarter: 2024Q4

REPORT INFORMATION
  Report Type: Spontaneous
  Country: US (occurrence: US)
  Receive Date: 20241113
  Receipt Date: 20241113
  Transmission Date: 20250115
  Serious: No
  Sender: TEVA
  Company Number: US-TEVA-VS-3258523

PATIENT
  Age: 72 Year
  Sex: Female

DRUGS (1)
  1. AJOVY [Suspect]
     Active Substance: FREMANEZUMAB-VFRM
     Indication: Craniocerebral injury
     Dosage: 225/1.5 MG/ML, 225 MG TAKEN ONCE A MONTH UNDER THE SKIN
     Route: 065

REACTIONS (2)
  - Alopecia [Unknown]
  - Off label use [Unknown]
